FAERS Safety Report 6533991-3 (Version None)
Quarter: 2010Q1

REPORT INFORMATION
  Report Type: 
  Country: None (occurrence: None)
  Receive Date: 20100112
  Receipt Date: 20100106
  Transmission Date: 20100710
  Serious: Yes (Hospitalization)
  Sender: FDA-Public Use
  Company Number: TR-ELI_LILLY_AND_COMPANY-TR201001000618

PATIENT
  Age: 66 Year
  Sex: Female

DRUGS (5)
  1. HUMULIN N [Suspect]
     Indication: DIABETES MELLITUS
     Dosage: 45 IU, EACH MORNING
     Route: 058
     Dates: start: 19940101
  2. HUMULIN N [Suspect]
     Dosage: 25 IU, EACH EVENING
     Route: 058
     Dates: start: 19940101
  3. BETASERC [Concomitant]
     Indication: OTITIS MEDIA
     Dosage: UNK UNK, 2/D
     Route: 048
  4. NOOTROPIL [Concomitant]
     Indication: OTITIS MEDIA
     Dosage: UNK UNK, 2/D
     Route: 048
  5. VASTAREL [Concomitant]
     Indication: OTITIS MEDIA
     Dosage: UNK UNK, 2/D
     Route: 048

REACTIONS (2)
  - ANGIOGRAM [None]
  - BLOOD GLUCOSE INCREASED [None]
